FAERS Safety Report 22349757 (Version 2)
Quarter: 2023Q2

REPORT INFORMATION
  Report Type: Spontaneous
  Country: US (occurrence: US)
  Receive Date: 20230522
  Receipt Date: 20230524
  Transmission Date: 20230722
  Serious: Yes (Hospitalization, Other)
  Sender: FDA-Public Use
  Company Number: US-MLMSERVICE-20230509-4277419-1

PATIENT
  Age: 7 Decade
  Sex: Male

DRUGS (2)
  1. HEPARIN SODIUM [Suspect]
     Active Substance: HEPARIN SODIUM
     Indication: Thrombophlebitis
     Dosage: UNK, THERAPEUTIC-INTENSITY UNFRACTIONATED HEPARIN
  2. HEPARIN SODIUM [Suspect]
     Active Substance: HEPARIN SODIUM
     Indication: Thrombosis prophylaxis
     Dosage: 5000 IU, 3X/DAY, FREQ:8 H
     Route: 058

REACTIONS (2)
  - Cerebral venous sinus thrombosis [Unknown]
  - Heparin-induced thrombocytopenia [Recovered/Resolved]
